FAERS Safety Report 7773009-8 (Version None)
Quarter: 2011Q3

REPORT INFORMATION
  Report Type: 
  Country: None (occurrence: None)
  Receive Date: 20110922
  Receipt Date: 20110630
  Transmission Date: 20111222
  Serious: No
  Sender: FDA-Public Use
  Company Number: US-ASTRAZENECA-2011SE35963

PATIENT
  Age: 38 Year
  Sex: Male

DRUGS (8)
  1. SEROQUEL [Suspect]
     Route: 048
  2. SEROQUEL [Suspect]
     Route: 048
     Dates: start: 20100101
  3. SEROQUEL [Suspect]
     Dosage: 3 AND HALF TABLETS HS
     Route: 048
  4. PHENERGAN HCL [Concomitant]
     Indication: NAUSEA
  5. SEROQUEL [Suspect]
     Route: 048
     Dates: start: 20110620
  6. SEROQUEL [Suspect]
     Route: 048
  7. DIAZEPAM [Concomitant]
  8. ALBUTEROL [Concomitant]
     Indication: ASTHMA

REACTIONS (7)
  - INSOMNIA [None]
  - MUSCLE TIGHTNESS [None]
  - MOOD SWINGS [None]
  - DRUG WITHDRAWAL SYNDROME [None]
  - HOT FLUSH [None]
  - CONSTIPATION [None]
  - DRUG DOSE OMISSION [None]
